FAERS Safety Report 7605334-5 (Version None)
Quarter: 2011Q3

REPORT INFORMATION
  Report Type: 
  Country: None (occurrence: None)
  Receive Date: 20110713
  Receipt Date: 20110708
  Transmission Date: 20111222
  Serious: Yes (Death, Hospitalization)
  Sender: FDA-Public Use
  Company Number: US-ASTELLAS-2011US003615

PATIENT
  Sex: Female

DRUGS (4)
  1. INVANZ [Concomitant]
     Indication: PRODUCT USED FOR UNKNOWN INDICATION
     Dosage: 1 G, UNKNOWN/D
     Route: 065
     Dates: start: 20110510, end: 20110619
  2. DORIPENEM MONOHYDRATE [Concomitant]
     Indication: PRODUCT USED FOR UNKNOWN INDICATION
     Dosage: 500 MG, UNKNOWN/D
     Route: 065
     Dates: start: 20110619, end: 20110623
  3. MYCAMINE [Suspect]
     Indication: SYSTEMIC CANDIDA
     Dosage: 2000 MG, UNKNOWN/D
     Route: 050
     Dates: start: 20110523, end: 20110622
  4. AMBISOME [Suspect]
     Indication: PRODUCT USED FOR UNKNOWN INDICATION
     Dosage: 400 MG, UID/QD
     Route: 050
     Dates: start: 20110525, end: 20110525

REACTIONS (4)
  - ABDOMINAL PAIN [None]
  - CHILLS [None]
  - DEATH [None]
  - INFUSION RELATED REACTION [None]
